FAERS Safety Report 8605569-9 (Version None)
Quarter: 2012Q3

REPORT INFORMATION
  Report Type: 
  Country: None (occurrence: None)
  Receive Date: 20120820
  Receipt Date: 20070519
  Transmission Date: 20120928
  Serious: Yes (Other)
  Sender: FDA-Public Use
  Company Number: CO-PFIZER INC-2012202154

PATIENT
  Age: 58 Year
  Sex: Female

DRUGS (4)
  1. LIPITOR [Suspect]
     Dosage: 10 MG, 1X/DAY
     Route: 048
  2. INSULIN ZINC SUSPENSION [Concomitant]
     Dosage: 100 IU/ML, 2X/DAY
  3. METOPROLOL TARTRATE [Concomitant]
     Dosage: 100 MG, 1X/DAY
     Route: 048
  4. QUINAPRIL AND HYDROCHLOROTHIAZIDE [Suspect]
     Dosage: 20/12.5 MG, 1X/DAY
     Route: 048

REACTIONS (1)
  - HYPERTENSIVE EMERGENCY [None]
